FAERS Safety Report 5062274-6 (Version None)
Quarter: 2006Q3

REPORT INFORMATION
  Report Type: 
  Country: None (occurrence: None)
  Receive Date: 20060721
  Receipt Date: 20060713
  Transmission Date: 20061208
  Serious: Yes (Other)
  Sender: FDA-Public Use
  Company Number: 2006069069

PATIENT
  Age: 57 Year
  Sex: Male
  Weight: 80 kg

DRUGS (2)
  1. XALATAN [Suspect]
     Indication: GLAUCOMA
     Dosage: QD, INTRAOCULAR
     Route: 031
     Dates: start: 20060111
  2. HYALEIN (HYALURONATE SODIUM) [Concomitant]

REACTIONS (3)
  - ARRHYTHMIA [None]
  - NASOPHARYNGITIS [None]
  - SLEEP APNOEA SYNDROME [None]
